FAERS Safety Report 20324856 (Version 1)
Quarter: 2022Q1

REPORT INFORMATION
  Report Type: Spontaneous
  Country: JP (occurrence: JP)
  Receive Date: 20220111
  Receipt Date: 20220111
  Transmission Date: 20220423
  Serious: Yes (Other)
  Sender: FDA-Public Use
  Company Number: JP-NBI-J202200246BIPI

PATIENT
  Age: 84 Year

DRUGS (2)
  1. PRAMIPEXOLE [Suspect]
     Active Substance: PRAMIPEXOLE
     Indication: Restless legs syndrome
     Route: 048
  2. PRAMIPEXOLE [Suspect]
     Active Substance: PRAMIPEXOLE
     Route: 048
     Dates: start: 201906

REACTIONS (6)
  - Loss of consciousness [Unknown]
  - Loss of consciousness [Unknown]
  - Inappropriate schedule of product administration [Unknown]
  - Road traffic accident [Unknown]
  - Fall [Unknown]
  - Contusion [Unknown]
